FAERS Safety Report 17430714 (Version 4)
Quarter: 2021Q1

REPORT INFORMATION
  Report Type: Spontaneous
  Country: US (occurrence: US)
  Receive Date: 20200218
  Receipt Date: 20210118
  Transmission Date: 20210419
  Serious: Yes (Other)
  Sender: FDA-Public Use
  Company Number: US-BIOCODEX SA-201901715

PATIENT

DRUGS (3)
  1. DIACOMIT [Suspect]
     Active Substance: STIRIPENTOL
     Dosage: 500MG TWICE A DAY
     Route: 065
     Dates: start: 20190613
  2. DIACOMIT [Suspect]
     Active Substance: STIRIPENTOL
     Indication: SEVERE MYOCLONIC EPILEPSY OF INFANCY
     Dosage: 500MG TWICE A DAY
     Route: 065
     Dates: start: 20190521
  3. DIACOMIT [Suspect]
     Active Substance: STIRIPENTOL
     Dosage: 250/500MG TWICE DAILY
     Route: 065

REACTIONS (6)
  - Product use in unapproved indication [Unknown]
  - Muscular weakness [Not Recovered/Not Resolved]
  - Monoparesis [Unknown]
  - Tremor [Not Recovered/Not Resolved]
  - Diarrhoea [Unknown]
  - Seizure [Recovered/Resolved]

NARRATIVE: CASE EVENT DATE: 20200328
